FAERS Safety Report 10028271 (Version 4)
Quarter: 2014Q4

REPORT INFORMATION
  Report Type: Spontaneous
  Country: US (occurrence: None)
  Receive Date: 20140307
  Receipt Date: 20141008
  Transmission Date: 20150528
  Serious: Yes (Other)
  Sender: FDA-Public Use
  Company Number: 2013-US-004397

PATIENT
  Age: 67 Year
  Sex: Male

DRUGS (1)
  1. XYREM [Suspect]
     Active Substance: SODIUM OXYBATE
     Indication: SOMNOLENCE
     Route: 048
     Dates: start: 201308, end: 2013

REACTIONS (2)
  - Off label use [None]
  - Diabetes mellitus [None]

NARRATIVE: CASE EVENT DATE: 201401
